FAERS Safety Report 18360579 (Version 1)
Quarter: 2020Q4

REPORT INFORMATION
  Report Type: Spontaneous
  Country: US (occurrence: US)
  Receive Date: 20201008
  Receipt Date: 20201008
  Transmission Date: 20210114
  Serious: Yes (Other)
  Sender: FDA-Public Use
  Company Number: None

PATIENT
  Age: 60 Year
  Sex: Male
  Weight: 103 kg

DRUGS (1)
  1. ROBAXIN [Suspect]
     Active Substance: METHOCARBAMOL
     Indication: PAIN
     Route: 042
     Dates: start: 20201006, end: 20201008

REACTIONS (6)
  - Aphasia [None]
  - Vertigo [None]
  - Dysarthria [None]
  - Nausea [None]
  - Mental status changes [None]
  - Restlessness [None]

NARRATIVE: CASE EVENT DATE: 20201008
